FAERS Safety Report 20350521 (Version 1)
Quarter: 2022Q1

REPORT INFORMATION
  Report Type: Spontaneous
  Country: CH (occurrence: CH)
  Receive Date: 20220119
  Receipt Date: 20220119
  Transmission Date: 20220423
  Serious: Yes (Other)
  Sender: FDA-Public Use
  Company Number: CH-PFIZER INC-202200043420

PATIENT
  Age: 37 Year
  Sex: Female

DRUGS (2)
  1. CLINDAMYCIN [Suspect]
     Active Substance: CLINDAMYCIN
     Dosage: 300 MG
     Route: 042
  2. CLINDAMYCIN [Suspect]
     Active Substance: CLINDAMYCIN
     Dosage: UNK (600)
     Route: 042
     Dates: start: 2019

REACTIONS (2)
  - Ototoxicity [Not Recovered/Not Resolved]
  - Hypoacusis [Not Recovered/Not Resolved]
